FAERS Safety Report 15252499 (Version 2)
Quarter: 2019Q4

REPORT INFORMATION
  Report Type: Spontaneous
  Country: US (occurrence: US)
  Receive Date: 20180807
  Receipt Date: 20191105
  Transmission Date: 20200122
  Serious: No
  Sender: FDA-Public Use
  Company Number: US-RADIUS HEALTH INC.-2018US000534

PATIENT
  Age: 64 Year
  Sex: Female

DRUGS (2)
  1. TYMLOS [Suspect]
     Active Substance: ABALOPARATIDE
     Indication: OSTEOPOROSIS POSTMENOPAUSAL
     Dosage: 80 MCG, DAILY
     Route: 058
     Dates: start: 20180224, end: 20180325
  2. TYMLOS [Suspect]
     Active Substance: ABALOPARATIDE
     Dosage: 80 MCG ONCE A DAY IN THE EVENING
     Route: 058
     Dates: start: 20180328

REACTIONS (8)
  - Needle issue [Recovered/Resolved]
  - Product use issue [Unknown]
  - Injection site haemorrhage [Unknown]
  - Product dose omission [Recovered/Resolved]
  - Wrong technique in product usage process [Recovered/Resolved]
  - Injection site bruising [Unknown]
  - Product quality issue [Recovered/Resolved]
  - Injection site pain [Unknown]

NARRATIVE: CASE EVENT DATE: 20180224
